FAERS Safety Report 6083210-X (Version None)
Quarter: 2009Q1

REPORT INFORMATION
  Report Type: 
  Country: None (occurrence: None)
  Receive Date: 20090219
  Receipt Date: 20090210
  Transmission Date: 20090719
  Serious: Yes (Hospitalization)
  Sender: FDA-Public Use
  Company Number: JP-JNJFOC-20090200382

PATIENT
  Sex: Female

DRUGS (7)
  1. CRAVIT [Suspect]
     Indication: BRONCHITIS
     Route: 048
  2. IBUPROFEN TABLETS [Suspect]
     Indication: BRONCHITIS
     Route: 048
  3. IBUPROFEN TABLETS [Suspect]
     Indication: NASOPHARYNGITIS
     Route: 048
  4. POLARAMINE [Concomitant]
     Indication: BRONCHITIS
     Route: 048
  5. POLARAMINE [Concomitant]
     Indication: NASOPHARYNGITIS
     Route: 048
  6. SHOUSEIRYUUTOU [Concomitant]
     Indication: NASOPHARYNGITIS
     Route: 048
  7. SHOUSEIRYUUTOU [Concomitant]
     Indication: BRONCHITIS
     Dosage: DOSE:1 DF
     Route: 048

REACTIONS (3)
  - ABDOMINAL PAIN [None]
  - CONVULSION [None]
  - PALPITATIONS [None]
